FAERS Safety Report 7539221-8 (Version None)
Quarter: 2011Q2

REPORT INFORMATION
  Report Type: 
  Country: None (occurrence: None)
  Receive Date: 20110524
  Receipt Date: 20110408
  Transmission Date: 20111010
  Serious: No
  Sender: FDA-Public Use
  Company Number: 031006

PATIENT
  Sex: Female
  Weight: 93 kg

DRUGS (6)
  1. VITAMIN D [Concomitant]
  2. CIMZIA [Suspect]
     Indication: CROHN'S DISEASE
     Dosage: (400 MG1 X/2 WEEKS SUBCUTANEOUS)
     Route: 058
     Dates: start: 20110406
  3. CALCIUM CARBONATE [Concomitant]
  4. PREDNISONE [Concomitant]
  5. MULTI-VITAMINS [Concomitant]
  6. EXCEDRIN /00214201/ [Concomitant]

REACTIONS (1)
  - ABDOMINAL PAIN [None]
